FAERS Safety Report 12776245 (Version 1)
Quarter: 2016Q3

REPORT INFORMATION
  Report Type: Spontaneous
  Country: FR (occurrence: FR)
  Receive Date: 20160923
  Receipt Date: 20160923
  Transmission Date: 20161109
  Serious: Yes (Life-Threatening, Other)
  Sender: FDA-Public Use
  Company Number: FR-TEVA-693059ISR

PATIENT
  Age: 51 Year
  Sex: Male

DRUGS (8)
  1. VALIUM [Concomitant]
     Active Substance: DIAZEPAM
     Dates: end: 20160815
  2. STILNOX [Concomitant]
     Active Substance: ZOLPIDEM TARTRATE
     Dates: end: 20160815
  3. IBUPROFEN. [Suspect]
     Active Substance: IBUPROFEN
     Indication: BACK PAIN
     Route: 065
     Dates: start: 20160805, end: 20160808
  4. CLOZAPINE. [Suspect]
     Active Substance: CLOZAPINE
     Indication: SCHIZOPHRENIA
     Dosage: 900 MILLIGRAM DAILY;
     Route: 048
     Dates: start: 1988, end: 20160815
  5. VOLTARENE [Suspect]
     Active Substance: DICLOFENAC SODIUM
     Indication: BACK PAIN
     Dosage: 2 DOSAGE FORMS DAILY;
     Route: 048
     Dates: start: 20160808, end: 20160814
  6. NOZINAN [Suspect]
     Active Substance: LEVOMEPROMAZINE
     Indication: ANXIETY
     Dosage: DAILY DOSE:75 TO 125 MG
     Route: 048
     Dates: end: 20160722
  7. NOZINAN [Suspect]
     Active Substance: LEVOMEPROMAZINE
     Dosage: 200 MILLIGRAM DAILY;
     Route: 065
     Dates: start: 20160722, end: 20160729
  8. NOZINAN [Suspect]
     Active Substance: LEVOMEPROMAZINE
     Dosage: 150 MILLIGRAM DAILY;
     Route: 048
     Dates: start: 20160729, end: 20160815

REACTIONS (6)
  - Coma [None]
  - Respiratory distress [None]
  - Agitation [None]
  - Ileus paralytic [Recovered/Resolved]
  - Pneumonia aspiration [None]
  - Renal failure [None]

NARRATIVE: CASE EVENT DATE: 20160815
